FAERS Safety Report 4695600-8 (Version None)
Quarter: 2005Q2

REPORT INFORMATION
  Report Type: 
  Country: None (occurrence: None)
  Receive Date: 20050621
  Receipt Date: 20050609
  Transmission Date: 20051028
  Serious: Yes (Other)
  Sender: FDA-Public Use
  Company Number: PHBS2005BR08384

PATIENT
  Sex: Male

DRUGS (1)
  1. VOLTAREN [Suspect]
     Indication: BACK PAIN
     Dosage: 75 MG, ONCE/SINGLE
     Dates: start: 20050428

REACTIONS (4)
  - DIFFICULTY IN WALKING [None]
  - NEUROPATHY [None]
  - PARAESTHESIA [None]
  - PARALYSIS [None]
